FAERS Safety Report 20918494 (Version 1)
Quarter: 2022Q2

REPORT INFORMATION
  Report Type: Spontaneous
  Country: CN (occurrence: CN)
  Receive Date: 20220606
  Receipt Date: 20220606
  Transmission Date: 20220721
  Serious: Yes (Life-Threatening, Other)
  Sender: FDA-Public Use
  Company Number: CN-MLMSERVICE-20220511-3549673-1

PATIENT
  Age: 12 Year
  Sex: Male

DRUGS (6)
  1. IFOSFAMIDE [Suspect]
     Active Substance: IFOSFAMIDE
     Indication: Rhabdomyosarcoma
     Dosage: UNK
     Route: 065
     Dates: start: 20170219
  2. IFOSFAMIDE [Suspect]
     Active Substance: IFOSFAMIDE
     Indication: Metastases to lung
  3. DOXORUBICIN [Suspect]
     Active Substance: DOXORUBICIN
     Indication: Metastases to lung
     Dosage: UNK, 1 CYCLICAL
     Route: 065
     Dates: start: 20170219
  4. DOXORUBICIN [Suspect]
     Active Substance: DOXORUBICIN
     Indication: Rhabdomyosarcoma
  5. ENDOSTATIN [Concomitant]
     Active Substance: ENDOSTATIN
     Indication: Rhabdomyosarcoma
     Dosage: UNK
     Route: 065
     Dates: start: 201702
  6. ENDOSTATIN [Concomitant]
     Active Substance: ENDOSTATIN
     Indication: Metastases to lung

REACTIONS (3)
  - Treatment failure [Recovered/Resolved]
  - Myelosuppression [Unknown]
  - Nausea [Unknown]

NARRATIVE: CASE EVENT DATE: 20170101
